FAERS Safety Report 17453110 (Version 5)
Quarter: 2020Q2

REPORT INFORMATION
  Report Type: Report from Study
  Country: AT (occurrence: AT)
  Receive Date: 20200224
  Receipt Date: 20200421
  Transmission Date: 20200713
  Serious: Yes (Hospitalization)
  Sender: FDA-Public Use
  Company Number: NVSC2020AT047431

PATIENT
  Age: 61 Year
  Sex: Male
  Weight: 70.4 kg

DRUGS (43)
  1. ELOMEL [Concomitant]
     Indication: DIARRHOEA
     Dosage: UNK
     Route: 065
     Dates: start: 20200209
  2. ZORFEN [Concomitant]
     Indication: PROPHYLAXIS OF NAUSEA AND VOMITING
     Dosage: UNK
     Route: 065
     Dates: start: 20191111
  3. ALLOPURINOL. [Concomitant]
     Active Substance: ALLOPURINOL
     Indication: HYPERURICAEMIA
     Dosage: UNK
     Route: 065
     Dates: start: 20191202
  4. LYRICA [Concomitant]
     Active Substance: PREGABALIN
     Indication: PAIN PROPHYLAXIS
     Dosage: UNK
     Route: 065
     Dates: start: 20200203
  5. DIGIMERCK [Concomitant]
     Active Substance: DIGITOXIN
     Indication: ATRIAL FIBRILLATION
     Dosage: UNK
     Route: 065
     Dates: start: 20200211, end: 20200211
  6. MOLAXOLE [Concomitant]
     Active Substance: POLYETHYLENE GLYCOL 3350\POTASSIUM CHLORIDE\SODIUM BICARBONATE\SODIUM CHLORIDE
     Indication: PROPHYLAXIS
     Dosage: UNK
     Route: 065
     Dates: start: 20191112
  7. VENDAL [Concomitant]
     Active Substance: MORPHINE HYDROCHLORIDE
     Indication: PAIN
     Dosage: UNK
     Route: 065
     Dates: start: 20200128, end: 20200129
  8. SOLUDACORTIN [Concomitant]
     Indication: PROPHYLAXIS
     Dosage: UNK
     Route: 065
     Dates: start: 20200203, end: 20200203
  9. KONAKION [Concomitant]
     Active Substance: PHYTONADIONE
     Indication: HYPOKALAEMIA
     Dosage: UNK
     Route: 065
     Dates: start: 20200210, end: 20200210
  10. MEPINAEST [Concomitant]
     Indication: LOCAL ANAESTHESIA
     Dosage: UNK
     Route: 065
     Dates: start: 20200126, end: 20200126
  11. CYTARABINE. [Suspect]
     Active Substance: CYTARABINE
     Indication: B-CELL LYMPHOMA
     Dosage: 200 UNK, OTHER
     Route: 042
     Dates: start: 20200128
  12. KCL-RETARD [Concomitant]
     Active Substance: POTASSIUM CHLORIDE
     Indication: HYPOKALAEMIA
     Dosage: UNK
     Route: 065
     Dates: start: 20200211
  13. INOTYOL [Concomitant]
     Indication: ERYTHEMA
     Dosage: UNK
     Route: 065
     Dates: start: 20200202, end: 20200202
  14. PARACETAMOL [Concomitant]
     Active Substance: ACETAMINOPHEN
     Indication: PAIN
     Dosage: UNK
     Route: 065
     Dates: start: 20200128, end: 20200129
  15. MEXALEN [Concomitant]
     Active Substance: ACETAMINOPHEN
     Indication: PROPHYLAXIS
     Dosage: UNK
     Route: 065
     Dates: start: 20191112
  16. PASSEDAN [Concomitant]
     Indication: PROPHYLAXIS
     Dosage: UNK
     Route: 065
     Dates: start: 20191203
  17. FRAGMIN [Concomitant]
     Active Substance: DALTEPARIN SODIUM
     Dosage: UNK
     Route: 065
     Dates: start: 20200206, end: 20200206
  18. DIFLUCAN [Concomitant]
     Active Substance: FLUCONAZOLE
     Indication: INFECTION PROPHYLAXIS
     Dosage: UNK
     Route: 065
     Dates: start: 20200203, end: 20200214
  19. KALIORAL [Concomitant]
     Indication: HYPOKALAEMIA
     Dosage: UNK
     Route: 065
     Dates: start: 20200210, end: 20200212
  20. DEXAMETHASONE. [Suspect]
     Active Substance: DEXAMETHASONE
     Indication: B-CELL LYMPHOMA
     Dosage: 40 MG, OTHER
     Route: 048
     Dates: start: 20191112
  21. HALCION [Concomitant]
     Active Substance: TRIAZOLAM
     Indication: PROPHYLAXIS
     Dosage: UNK
     Route: 065
     Dates: start: 20191210
  22. ETOPOSIDE. [Suspect]
     Active Substance: ETOPOSIDE
     Indication: B-CELL LYMPHOMA
     Dosage: 200 UNK, OTHER
     Route: 042
     Dates: start: 20200128
  23. CARMUSTINE. [Suspect]
     Active Substance: CARMUSTINE
     Indication: B-CELL LYMPHOMA
     Dosage: 200 UNK, OTHER
     Route: 042
     Dates: start: 20200127
  24. RITUXIMAB. [Suspect]
     Active Substance: RITUXIMAB
     Indication: B-CELL LYMPHOMA
     Dosage: 375 UNK, Q3W
     Route: 042
     Dates: start: 20191111
  25. PARACETAMOL [Concomitant]
     Active Substance: ACETAMINOPHEN
     Indication: PYREXIA
     Dosage: UNK
     Route: 065
     Dates: start: 20200205, end: 20200211
  26. FRAGMIN [Concomitant]
     Active Substance: DALTEPARIN SODIUM
     Indication: THROMBOSIS PROPHYLAXIS
     Dosage: UNK
     Route: 065
     Dates: start: 20200127, end: 20200205
  27. TOREM [Concomitant]
     Active Substance: TORSEMIDE
     Indication: WEIGHT INCREASED
     Dosage: UNK
     Route: 065
     Dates: start: 20200129, end: 20200129
  28. PANTOLOC [Concomitant]
     Active Substance: PANTOPRAZOLE SODIUM
     Indication: PROPHYLAXIS
     Route: 065
  29. KCL ZYMA [Concomitant]
     Indication: HYPOKALAEMIA
     Dosage: UNK
     Route: 065
     Dates: start: 20200213, end: 20200221
  30. MELPHALAN. [Suspect]
     Active Substance: MELPHALAN
     Indication: B-CELL LYMPHOMA
     Dosage: 264,UNK,ONCE/SINGLE
     Route: 042
     Dates: start: 20200201
  31. CISPLATIN. [Suspect]
     Active Substance: CISPLATIN
     Indication: B-CELL LYMPHOMA
     Dosage: 75 UNK, Q3W
     Route: 042
     Dates: start: 20191112
  32. ZARZIO [Concomitant]
     Active Substance: FILGRASTIM
     Indication: NEUTROPENIA
     Dosage: UNK
     Route: 065
     Dates: start: 20191119
  33. CONCOR [Concomitant]
     Active Substance: BISOPROLOL FUMARATE
     Indication: ATRIAL FIBRILLATION
     Dosage: UNK
     Route: 065
     Dates: start: 20200211, end: 20200211
  34. GLANDOMED [Concomitant]
     Indication: ERYTHEMA
     Dosage: UNK
     Route: 065
     Dates: start: 20200203, end: 20200206
  35. VALACICLOVIR [Concomitant]
     Active Substance: VALACYCLOVIR HYDROCHLORIDE
     Indication: HERPES SIMPLEX
     Dosage: UNK
     Route: 065
     Dates: start: 20200102
  36. ACCOFIL [Concomitant]
     Active Substance: FILGRASTIM
     Indication: PROPHYLAXIS
     Dosage: UNK
     Route: 065
     Dates: start: 20200204, end: 20200213
  37. GEMCITABINE. [Suspect]
     Active Substance: GEMCITABINE
     Indication: B-CELL LYMPHOMA
     Dosage: 999 UNK, OTHER
     Route: 042
     Dates: start: 20191112
  38. CONCOR [Concomitant]
     Active Substance: BISOPROLOL FUMARATE
     Dosage: UNK
     Route: 065
     Dates: start: 20200212
  39. PERFALGAN [Concomitant]
     Active Substance: ACETAMINOPHEN
     Indication: PYREXIA
     Dosage: UNK
     Route: 065
     Dates: start: 20200209, end: 20200212
  40. KALIUM L MALAT [Concomitant]
     Indication: HYPOKALAEMIA
     Dosage: UNK
     Route: 065
     Dates: start: 20200211, end: 20200211
  41. PASPERTIN [Concomitant]
     Indication: PROPHYLAXIS OF NAUSEA AND VOMITING
     Dosage: UNK
     Route: 065
     Dates: start: 20191111
  42. HALCION [Concomitant]
     Active Substance: TRIAZOLAM
     Dosage: UNK
     Route: 065
     Dates: start: 20200128, end: 20200220
  43. MIRTABENE [Concomitant]
     Active Substance: MIRTAZAPINE
     Indication: PROPHYLAXIS
     Dosage: UNK
     Route: 065
     Dates: start: 20200205, end: 20200205

REACTIONS (1)
  - Pseudomonas infection [Recovered/Resolved]

NARRATIVE: CASE EVENT DATE: 20200216
